FAERS Safety Report 8432058-7 (Version None)
Quarter: 2012Q2

REPORT INFORMATION
  Report Type: 
  Country: None (occurrence: None)
  Receive Date: 20120613
  Receipt Date: 20120530
  Transmission Date: 20120825
  Serious: Yes (Life-Threatening, Hospitalization)
  Sender: FDA-Public Use
  Company Number: HU-CELGENEUS-076-21880-12060029

PATIENT
  Sex: Male

DRUGS (16)
  1. SUPPOSITORIUM ANALGETICUM FORTE [Concomitant]
     Route: 065
  2. AZULFIDINE [Concomitant]
     Route: 065
     Dates: start: 20111201
  3. CIPROFLOXACIN [Concomitant]
     Route: 065
     Dates: start: 20120522
  4. DEXAMETHASONE [Suspect]
     Indication: MULTIPLE MYELOMA
     Route: 065
  5. ELOTUZUMAB [Suspect]
     Indication: MULTIPLE MYELOMA
     Route: 065
  6. HIDROXYMORPHON [Concomitant]
     Route: 065
  7. TRAMADOL HCL [Concomitant]
     Route: 065
  8. VALSARTAN  AND HYDROCHLOROTHIAZIDE [Concomitant]
     Route: 065
  9. INDAPAMID [Concomitant]
     Route: 065
  10. PANTOPRAZOLE [Concomitant]
     Route: 065
     Dates: start: 20080718
  11. CHLOROQUINE [Concomitant]
     Route: 065
     Dates: start: 20111201
  12. ZOLEDRONIC ACID [Concomitant]
     Route: 065
     Dates: start: 20120425
  13. REVLIMID [Suspect]
     Indication: MULTIPLE MYELOMA
     Route: 048
  14. TOLPERISONE [Concomitant]
     Route: 065
  15. ACYCLOVIR [Concomitant]
     Route: 065
     Dates: start: 20120522
  16. ENOXAPARIN SODIUM [Concomitant]
     Route: 065
     Dates: start: 20120522

REACTIONS (3)
  - ANAEMIA [None]
  - TUMOUR LYSIS SYNDROME [None]
  - RENAL FAILURE ACUTE [None]
